FAERS Safety Report 19963482 (Version 1)
Quarter: 2021Q4

REPORT INFORMATION
  Report Type: Spontaneous
  Country: IN (occurrence: IN)
  Receive Date: 20211018
  Receipt Date: 20211018
  Transmission Date: 20220303
  Serious: Yes (Hospitalization)
  Sender: FDA-Public Use
  Company Number: IN-MYLANLABS-2021M1073195

PATIENT
  Sex: Female

DRUGS (4)
  1. MIDAZOLAM [Suspect]
     Active Substance: MIDAZOLAM
     Indication: Status epilepticus
     Dosage: UNK
     Route: 065
  2. PROPOFOL [Suspect]
     Active Substance: PROPOFOL
     Indication: Status epilepticus
     Dosage: UNK
     Route: 065
  3. KETAMINE [Suspect]
     Active Substance: KETAMINE
     Indication: Status epilepticus
     Dosage: UNK
     Route: 065
  4. THIOPENTAL [Suspect]
     Active Substance: THIOPENTAL
     Indication: Status epilepticus
     Dosage: UNK
     Route: 065

REACTIONS (1)
  - Drug ineffective [Unknown]
